FAERS Safety Report 13922410 (Version 2)
Quarter: 2017Q4

REPORT INFORMATION
  Report Type: Spontaneous
  Country: US (occurrence: US)
  Receive Date: 20170830
  Receipt Date: 20171013
  Transmission Date: 20180320
  Serious: Yes (Other)
  Sender: FDA-Public Use
  Company Number: US-BAYER-2017-165581

PATIENT
  Age: 32 Year
  Sex: Female
  Weight: 68 kg

DRUGS (1)
  1. MIRENA [Suspect]
     Active Substance: LEVONORGESTREL
     Indication: CONTRACEPTION
     Dosage: 20 MCG/24HR, CONT
     Route: 015
     Dates: start: 20160219

REACTIONS (5)
  - Ectopic pregnancy with contraceptive device [None]
  - Intra-abdominal fluid collection [None]
  - Drug ineffective [None]
  - Genital haemorrhage [None]
  - Abdominal pain [None]

NARRATIVE: CASE EVENT DATE: 20170721
